FAERS Safety Report 4918086-4 (Version None)
Quarter: 2006Q1

REPORT INFORMATION
  Report Type: 
  Country: None (occurrence: None)
  Receive Date: 20060221
  Receipt Date: 20051020
  Transmission Date: 20060701
  Serious: Yes (Hospitalization, Other)
  Sender: FDA-Public Use
  Company Number: US-MERCK-0510USA08164

PATIENT
  Age: 50 Year
  Sex: Female
  Weight: 69 kg

DRUGS (2)
  1. VIOXX [Suspect]
     Indication: ARTHRITIS
     Route: 048
     Dates: start: 20010418, end: 20040830
  2. VIOXX [Suspect]
     Indication: MUSCLE RELAXANT THERAPY
     Route: 048
     Dates: start: 20010418, end: 20040830

REACTIONS (1)
  - CEREBROVASCULAR ACCIDENT [None]
